FAERS Safety Report 5799150-7 (Version None)
Quarter: 2008Q3

REPORT INFORMATION
  Report Type: 
  Country: None (occurrence: None)
  Receive Date: 20080701
  Receipt Date: 20080619
  Transmission Date: 20090109
  Serious: Yes (Hospitalization, Other)
  Sender: FDA-Public Use
  Company Number: IMP_03741_2008

PATIENT
  Age: 22 Year
  Sex: Female

DRUGS (1)
  1. MINOCYCLINE HCL [Suspect]
     Indication: ACNE
     Dosage: 100 MG BID ORAL
     Route: 048
     Dates: start: 20080312, end: 20080401

REACTIONS (3)
  - BLINDNESS [None]
  - EAR INFECTION [None]
  - MASS [None]
